FAERS Safety Report 18625999 (Version 2)
Quarter: 2020Q4

REPORT INFORMATION
  Report Type: Report from Study
  Country: AU (occurrence: AU)
  Receive Date: 20201216
  Receipt Date: 20201223
  Transmission Date: 20210114
  Serious: Yes (Death, Life-Threatening, Hospitalization, Other)
  Sender: FDA-Public Use
  Company Number: AU-EXELIXIS-XL18420035308

PATIENT
  Age: 90 Year
  Sex: Male
  Weight: 86.9 kg

DRUGS (8)
  1. ATEZOLIZUMAB. [Suspect]
     Active Substance: ATEZOLIZUMAB
     Indication: HORMONE-REFRACTORY PROSTATE CANCER
     Dosage: 1200 MG, Q3WEEKS
     Route: 042
     Dates: start: 20201104
  2. MICARDIS [Concomitant]
     Active Substance: TELMISARTAN
  3. PANADOL [Concomitant]
     Active Substance: ACETAMINOPHEN
  4. CALTRATE [Concomitant]
     Active Substance: CALCIUM CARBONATE
  5. INDOCIN [Concomitant]
     Active Substance: INDOMETHACIN
  6. TRAMADOL. [Concomitant]
     Active Substance: TRAMADOL
  7. ADVIL [Concomitant]
     Active Substance: IBUPROFEN
  8. XL184 [Suspect]
     Active Substance: CABOZANTINIB
     Indication: HORMONE-REFRACTORY PROSTATE CANCER
     Dosage: 40 MG, QD
     Route: 048
     Dates: start: 20201104

REACTIONS (6)
  - Acute myocardial infarction [Recovered/Resolved]
  - Pyrexia [Recovered/Resolved]
  - Periorbital infection [Fatal]
  - Febrile neutropenia [Fatal]
  - Pyrexia [Recovered/Resolved]
  - Fall [Recovered/Resolved]

NARRATIVE: CASE EVENT DATE: 20201118
